FAERS Safety Report 9411438 (Version 4)
Quarter: 2014Q2

REPORT INFORMATION
  Report Type: Report from Study
  Country: JP (occurrence: JP)
  Receive Date: 20130722
  Receipt Date: 20140417
  Transmission Date: 20141212
  Serious: Yes (Hospitalization, Other)
  Sender: FDA-Public Use
  Company Number: JP-009507513-1307USA008822

PATIENT
  Age: 67 Year
  Sex: Male
  Weight: 65 kg

DRUGS (6)
  1. NU-LOTAN TABLETS 50MG [Suspect]
     Indication: CARDIAC FAILURE CHRONIC
     Dosage: 50 MG, QD
     Route: 048
     Dates: start: 20120116
  2. ARTIST [Suspect]
     Indication: CARDIAC FAILURE CHRONIC
     Dosage: 7.5 MG, QD
     Route: 048
     Dates: start: 20120126
  3. ARTIST [Suspect]
     Dosage: 5 MG, QD
     Route: 048
     Dates: start: 20130615
  4. FLUITRAN [Suspect]
     Indication: CARDIAC FAILURE CHRONIC
     Dosage: 1 MG, QD
     Route: 048
     Dates: start: 20111022
  5. STUDY DRUG (UNSPECIFIED) [Suspect]
     Indication: CARDIAC FAILURE CHRONIC
     Dosage: UNK
     Dates: start: 20120207, end: 20120306
  6. WARFARIN SODIUM [Concomitant]
     Indication: ATRIAL FIBRILLATION
     Dosage: UNK
     Route: 048
     Dates: start: 20130227

REACTIONS (3)
  - Loss of consciousness [Recovered/Resolved]
  - Spinal cord injury cervical [Recovering/Resolving]
  - Myelopathy [Recovering/Resolving]
